FAERS Safety Report 10516689 (Version 6)
Quarter: 2018Q3

REPORT INFORMATION
  Report Type: Report from Study
  Country: US (occurrence: US)
  Receive Date: 20141014
  Receipt Date: 20180710
  Transmission Date: 20181010
  Serious: Yes (Other)
  Sender: FDA-Public Use
  Company Number: US-SANOFI-AVENTIS-2013SA047019

PATIENT
  Age: 39 Year
  Sex: Female

DRUGS (6)
  1. TERIFLUNOMIDE [Suspect]
     Active Substance: TERIFLUNOMIDE
     Dosage: 14 MG,QD
     Route: 048
     Dates: start: 20130326
  2. TERIFLUNOMIDE [Suspect]
     Active Substance: TERIFLUNOMIDE
     Dosage: 14 MG,QD
     Route: 048
     Dates: start: 20130326
  3. BUSPAR [Concomitant]
     Active Substance: BUSPIRONE HYDROCHLORIDE
     Indication: ANXIETY
     Dosage: UNK
  4. TERIFLUNOMIDE [Suspect]
     Active Substance: TERIFLUNOMIDE
     Dosage: 14 MG,QD
     Route: 048
     Dates: start: 20130326
  5. CLONOPIN [Concomitant]
     Active Substance: CLONAZEPAM
     Indication: ANXIETY
     Dosage: UNK
  6. NOVOCAIN [Concomitant]
     Active Substance: PROCAINE HYDROCHLORIDE
     Dosage: UNK
     Dates: start: 20130417

REACTIONS (37)
  - Insomnia [Unknown]
  - Limb discomfort [Unknown]
  - Fall [Unknown]
  - Staphylococcal infection [Recovered/Resolved]
  - Balance disorder [Recovered/Resolved]
  - Fall [Recovered/Resolved]
  - Mood swings [Recovering/Resolving]
  - Dyspnoea [Recovered/Resolved]
  - Emotional disorder [Unknown]
  - Neck injury [Unknown]
  - Gait disturbance [Unknown]
  - Migraine [Recovered/Resolved]
  - Alopecia [Recovered/Resolved]
  - Headache [Unknown]
  - Skin disorder [Recovering/Resolving]
  - Psychogenic seizure [Unknown]
  - Pain [Recovered/Resolved]
  - Frustration tolerance decreased [Unknown]
  - Hypersensitivity [Not Recovered/Not Resolved]
  - Hemiparesis [Unknown]
  - Hypoaesthesia [Unknown]
  - Muscular weakness [Unknown]
  - Fatigue [Unknown]
  - Dysgraphia [Unknown]
  - Condition aggravated [Recovered/Resolved]
  - Gait disturbance [Recovered/Resolved]
  - Weight decreased [Unknown]
  - Pain in jaw [Recovered/Resolved]
  - Cognitive disorder [Not Recovered/Not Resolved]
  - Thinking abnormal [Unknown]
  - Photosensitivity reaction [Unknown]
  - Swelling [Unknown]
  - Muscle spasms [Unknown]
  - Anxiety [Recovering/Resolving]
  - Panic attack [Recovering/Resolving]
  - Eczema [Recovering/Resolving]
  - Condition aggravated [Recovering/Resolving]

NARRATIVE: CASE EVENT DATE: 2013
